FAERS Safety Report 6044738-1 (Version None)
Quarter: 2009Q1

REPORT INFORMATION
  Report Type: 
  Country: None (occurrence: None)
  Receive Date: 20090120
  Receipt Date: 20090114
  Transmission Date: 20090719
  Serious: No
  Sender: FDA-Public Use
  Company Number: US-B.I. PHARMACEUTICALS,INC./RIDGEFIELD-2009-BP-00482BP

PATIENT
  Sex: Male

DRUGS (4)
  1. VIRAMUNE [Suspect]
     Indication: HIV INFECTION
     Route: 054
     Dates: start: 20000101
  2. ZERIT [Concomitant]
     Indication: HIV INFECTION
     Dates: start: 20000101, end: 20080101
  3. ZIAGEN [Concomitant]
     Indication: HIV INFECTION
     Dates: start: 20000101, end: 20080101
  4. TRUVADA [Concomitant]
     Indication: HIV INFECTION
     Dates: start: 20080101

REACTIONS (3)
  - FACIAL WASTING [None]
  - LIPOATROPHY [None]
  - PAIN [None]
